FAERS Safety Report 23301491 (Version 2)
Quarter: 2023Q4

REPORT INFORMATION
  Report Type: Spontaneous
  Country: HU (occurrence: HU)
  Receive Date: 20231215
  Receipt Date: 20231226
  Transmission Date: 20240110
  Serious: Yes (Death)
  Sender: FDA-Public Use
  Company Number: HU-ABBVIE-5539312

PATIENT
  Age: 62 Year

DRUGS (2)
  1. VENETOCLAX [Suspect]
     Active Substance: VENETOCLAX
     Indication: Blastic plasmacytoid dendritic cell neoplasia
     Dosage: 5 CYCLES
     Route: 048
  2. CYCLOPHOSPHAMIDE\DOXORUBICIN\PREDNISONE\VINCRISTINE [Suspect]
     Active Substance: CYCLOPHOSPHAMIDE\DOXORUBICIN\PREDNISONE\VINCRISTINE
     Indication: Blastic plasmacytoid dendritic cell neoplasia
     Dosage: 5 CYCLES
     Route: 065

REACTIONS (2)
  - Death [Fatal]
  - Off label use [Unknown]
